FAERS Safety Report 7043928-9 (Version None)
Quarter: 2010Q4

REPORT INFORMATION
  Report Type: 
  Country: None (occurrence: None)
  Receive Date: 20101012
  Receipt Date: 20101012
  Transmission Date: 20110411
  Serious: Yes (Other)
  Sender: FDA-Public Use
  Company Number: None

PATIENT
  Age: 77 Year
  Sex: Male
  Weight: 84.369 kg

DRUGS (1)
  1. NIASPAN [Suspect]
     Indication: BLOOD CHOLESTEROL
     Dosage: 1 TABLET BEDTIME PO
     Route: 048
     Dates: start: 20100925, end: 20101005

REACTIONS (3)
  - BURNING SENSATION [None]
  - ERYTHEMA [None]
  - URTICARIA [None]
